FAERS Safety Report 17059541 (Version 1)
Quarter: 2019Q4

REPORT INFORMATION
  Report Type: Spontaneous
  Country: US (occurrence: US)
  Receive Date: 20191121
  Receipt Date: 20191121
  Transmission Date: 20200122
  Serious: Yes (Hospitalization)
  Sender: FDA-Public Use
  Company Number: None

PATIENT
  Age: 66 Year
  Sex: Male

DRUGS (7)
  1. MAXALT [Concomitant]
     Active Substance: RIZATRIPTAN BENZOATE
  2. ASPIRIN. [Concomitant]
     Active Substance: ASPIRIN
  3. LISINOPRIL. [Concomitant]
     Active Substance: LISINOPRIL
  4. SIMVASTATIN. [Concomitant]
     Active Substance: SIMVASTATIN
  5. COSENTYX [Suspect]
     Active Substance: SECUKINUMAB
     Indication: PSORIATIC ARTHROPATHY
     Dosage: ?          OTHER FREQUENCY:Q4WKS;?
     Route: 058
     Dates: start: 20180103
  6. GABAPENTIN. [Concomitant]
     Active Substance: GABAPENTIN
  7. PROPRANOLOL [Concomitant]
     Active Substance: PROPRANOLOL HYDROCHLORIDE

REACTIONS (1)
  - Stent placement [None]

NARRATIVE: CASE EVENT DATE: 20190517
